FAERS Safety Report 8354008 (Version 3)
Quarter: 2020Q1

REPORT INFORMATION
  Report Type: Report from Study
  Country: DE (occurrence: DE)
  Receive Date: 20120125
  Receipt Date: 20200113
  Transmission Date: 20200409
  Serious: Yes (Other)
  Sender: FDA-Public Use
  Company Number: DE-UCBSA-050023

PATIENT
  Sex: Female
  Weight: 3.04 kg

DRUGS (2)
  1. KEPPRA [Suspect]
     Active Substance: LEVETIRACETAM
     Indication: PRODUCT USED FOR UNKNOWN INDICATION
     Dosage: TOTAL DAILY DOSE : 500 MG
     Route: 064
     Dates: end: 20110101
  2. LACOSAMIDE. [Suspect]
     Active Substance: LACOSAMIDE
     Indication: EPILEPSY
     Dosage: TOTAL DAILY DOSE : 200 MG
     Route: 064
     Dates: end: 20110101

REACTIONS (3)
  - Foetal malposition [Unknown]
  - Premature baby [Unknown]
  - Maternal exposure during pregnancy [Unknown]
